FAERS Safety Report 17070205 (Version 2)
Quarter: 2019Q4

REPORT INFORMATION
  Report Type: Spontaneous
  Country: GB (occurrence: GB)
  Receive Date: 20191125
  Receipt Date: 20191127
  Transmission Date: 20200122
  Serious: Yes (Life-Threatening)
  Sender: FDA-Public Use
  Company Number: GB-TEVA-2019-GB-1140799

PATIENT
  Age: 36 Year
  Sex: Female

DRUGS (7)
  1. CIPROFLOXACIN. [Suspect]
     Active Substance: CIPROFLOXACIN
     Route: 065
  2. ERYTHROMYCIN. [Suspect]
     Active Substance: ERYTHROMYCIN
     Route: 065
  3. CLEMIZOLE PENICILLIN [Suspect]
     Active Substance: CLEMIZOLE PENICILLIN
     Route: 065
  4. NITROFURANTOIN. [Suspect]
     Active Substance: NITROFURANTOIN
     Route: 065
  5. FLUCELVAX TETRA [Suspect]
     Active Substance: INFLUENZA VIRUS VACCINE
     Route: 030
     Dates: start: 20191003, end: 20191003
  6. CALCIUM ACETATE. [Suspect]
     Active Substance: CALCIUM ACETATE
     Dosage: DOSE: FREQ,
     Route: 065
  7. GADOLINIUM [Suspect]
     Active Substance: GADOLINIUM
     Route: 065

REACTIONS (1)
  - Anaphylactic reaction [Recovered/Resolved]
